FAERS Safety Report 10586141 (Version 1)
Quarter: 2014Q4

REPORT INFORMATION
  Report Type: Spontaneous
  Country: AU (occurrence: AU)
  Receive Date: 20141115
  Receipt Date: 20141115
  Transmission Date: 20150529
  Serious: Yes (Other)
  Sender: FDA-Public Use
  Company Number: PHHY2014AU145624

PATIENT
  Age: 28 Year
  Sex: Female

DRUGS (11)
  1. OLANZAPINE. [Suspect]
     Active Substance: OLANZAPINE
     Indication: POSTPARTUM DEPRESSION
     Route: 065
  2. AMISULPRIDE [Suspect]
     Active Substance: AMISULPRIDE
     Indication: PSYCHOTIC DISORDER
  3. DESVENLAFAXINE. [Concomitant]
     Active Substance: DESVENLAFAXINE
     Indication: DEPRESSION
     Route: 065
  4. ARIPIPRAZOLE. [Suspect]
     Active Substance: ARIPIPRAZOLE
     Indication: PSYCHOTIC DISORDER
  5. AMISULPRIDE [Suspect]
     Active Substance: AMISULPRIDE
     Indication: POSTPARTUM DEPRESSION
     Route: 065
  6. CITALOPRAM [Concomitant]
     Active Substance: CITALOPRAM HYDROBROMIDE
     Indication: DEPRESSION
     Dosage: 80 MG, QD IN THE MORNING
     Route: 065
     Dates: start: 201006
  7. CLOZAPINE. [Suspect]
     Active Substance: CLOZAPINE
     Indication: POSTPARTUM DEPRESSION
     Dosage: 300 MG, QD, AT NIGHT
     Route: 065
     Dates: start: 201101
  8. CLOZAPINE. [Suspect]
     Active Substance: CLOZAPINE
     Indication: PSYCHOTIC DISORDER
     Dosage: 225 MG,
     Route: 065
  9. ARIPIPRAZOLE. [Suspect]
     Active Substance: ARIPIPRAZOLE
     Indication: POSTPARTUM DEPRESSION
     Route: 065
  10. OLANZAPINE. [Suspect]
     Active Substance: OLANZAPINE
     Indication: PSYCHOTIC DISORDER
  11. DULOXETINE [Concomitant]
     Active Substance: DULOXETINE
     Indication: DEPRESSION
     Route: 065

REACTIONS (7)
  - Sleep disorder [Recovering/Resolving]
  - Restless legs syndrome [Recovering/Resolving]
  - Movement disorder [Recovering/Resolving]
  - Therapeutic response decreased [Unknown]
  - Emotional distress [Recovering/Resolving]
  - Condition aggravated [Unknown]
  - Oculogyric crisis [Unknown]
